FAERS Safety Report 6843471-3 (Version None)
Quarter: 2010Q3

REPORT INFORMATION
  Report Type: 
  Country: None (occurrence: None)
  Receive Date: 20100715
  Receipt Date: 20100707
  Transmission Date: 20110219
  Serious: Yes (Hospitalization)
  Sender: FDA-Public Use
  Company Number: US-JNJFOC-20100605393

PATIENT
  Sex: Female

DRUGS (2)
  1. LEVAQUIN [Suspect]
     Indication: SINUSITIS
     Route: 048
  2. THYROID TAB [Concomitant]
     Indication: HYPOTHYROIDISM
     Dosage: DOSE- VARIED/PILL
     Route: 048

REACTIONS (6)
  - DIABETES MELLITUS [None]
  - HYPERTENSION [None]
  - MUSCULAR WEAKNESS [None]
  - NEUROPATHY PERIPHERAL [None]
  - NIGHT SWEATS [None]
  - VASCULITIS [None]
